FAERS Safety Report 7945832-8 (Version None)
Quarter: 2011Q4

REPORT INFORMATION
  Report Type: 
  Country: None (occurrence: None)
  Receive Date: 20111129
  Receipt Date: 20111118
  Transmission Date: 20120403
  Serious: Yes (Other)
  Sender: FDA-Public Use
  Company Number: PHHY2011NL101461

PATIENT
  Sex: Male

DRUGS (1)
  1. DIOVAN [Suspect]
     Dosage: 40 MG, QD
     Dates: start: 20111012

REACTIONS (9)
  - COUGH [None]
  - FATIGUE [None]
  - ORAL HERPES [None]
  - DYSPNOEA [None]
  - DYSPHAGIA [None]
  - AGEUSIA [None]
  - PALATAL DISORDER [None]
  - HEADACHE [None]
  - NAUSEA [None]
